FAERS Safety Report 12877997 (Version 1)
Quarter: 2016Q4

REPORT INFORMATION
  Report Type: Spontaneous
  Country: US (occurrence: US)
  Receive Date: 20161024
  Receipt Date: 20161024
  Transmission Date: 20170207
  Serious: Yes (Life-Threatening, Hospitalization, Other)
  Sender: FDA-Public Use
  Company Number: US-APOTEX-2016AP013695

PATIENT
  Age: 77 Year
  Sex: Male
  Weight: 103 kg

DRUGS (23)
  1. LORCASERIN HYDROCHLORIDE [Suspect]
     Active Substance: LORCASERIN HYDROCHLORIDE
     Indication: WEIGHT CONTROL
     Dosage: UNK, BID
     Route: 048
     Dates: start: 20141002, end: 20151124
  2. NITROSTAT [Suspect]
     Active Substance: NITROGLYCERIN
     Indication: CARDIOVASCULAR DISORDER
     Dosage: 0.4 MG, PRN
     Route: 060
     Dates: start: 2008
  3. NITROSTAT [Suspect]
     Active Substance: NITROGLYCERIN
     Dosage: 0.4 MG,PRN
     Route: 060
     Dates: start: 201609
  4. VOLTAREN [Concomitant]
     Active Substance: DICLOFENAC SODIUM
     Indication: PRODUCT USED FOR UNKNOWN INDICATION
     Dosage: UNK
     Route: 065
  5. METOPROLOL. [Suspect]
     Active Substance: METOPROLOL
     Indication: CARDIOVASCULAR DISORDER
     Dosage: 50 MG, QD
     Route: 048
     Dates: start: 20160422
  6. ATENOLOL. [Concomitant]
     Active Substance: ATENOLOL
     Indication: PRODUCT USED FOR UNKNOWN INDICATION
     Dosage: UNK
     Route: 048
     Dates: start: 2008
  7. NOVOLOG [Concomitant]
     Active Substance: INSULIN ASPART
     Indication: PRODUCT USED FOR UNKNOWN INDICATION
     Dosage: UNK
     Route: 058
     Dates: start: 2009
  8. KLOR-CON [Concomitant]
     Active Substance: POTASSIUM CHLORIDE
     Indication: PRODUCT USED FOR UNKNOWN INDICATION
     Dosage: UNK
     Route: 065
  9. TERAZOSIN [Suspect]
     Active Substance: TERAZOSIN\TERAZOSIN HYDROCHLORIDE
     Dosage: 5 MG, QD
     Route: 048
     Dates: start: 20160423
  10. IMDUR [Suspect]
     Active Substance: ISOSORBIDE MONONITRATE
     Indication: CARDIOVASCULAR DISORDER
     Dosage: 60 MG, BID
     Route: 048
     Dates: start: 20140616, end: 20160421
  11. LASIX [Suspect]
     Active Substance: FUROSEMIDE
     Indication: OEDEMA PERIPHERAL
     Dosage: 20 MG, QD
     Route: 048
     Dates: start: 2011, end: 20151120
  12. LANTUS [Concomitant]
     Active Substance: INSULIN GLARGINE
     Indication: PRODUCT USED FOR UNKNOWN INDICATION
     Dosage: UNK
     Route: 058
     Dates: start: 2004
  13. PLAVIX [Concomitant]
     Active Substance: CLOPIDOGREL BISULFATE
     Indication: PRODUCT USED FOR UNKNOWN INDICATION
     Dosage: UNK
     Route: 048
     Dates: start: 2008
  14. COMBIVENT [Concomitant]
     Active Substance: ALBUTEROL SULFATE\IPRATROPIUM BROMIDE
     Indication: PRODUCT USED FOR UNKNOWN INDICATION
     Dosage: UNK
     Route: 065
  15. COREG [Concomitant]
     Active Substance: CARVEDILOL
     Indication: PRODUCT USED FOR UNKNOWN INDICATION
     Dosage: UNK
     Route: 065
  16. TERAZOSIN [Suspect]
     Active Substance: TERAZOSIN\TERAZOSIN HYDROCHLORIDE
     Indication: BENIGN PROSTATIC HYPERPLASIA
     Dosage: 5 MG, QD
     Route: 048
     Dates: start: 2004, end: 20160421
  17. NITROSTAT [Suspect]
     Active Substance: NITROGLYCERIN
     Indication: ANGINA UNSTABLE
     Dosage: 5 MCI, PER MINUTE
     Route: 042
     Dates: start: 20160911, end: 20160912
  18. GABAPENTIN. [Concomitant]
     Active Substance: GABAPENTIN
     Indication: PRODUCT USED FOR UNKNOWN INDICATION
     Dosage: UNK
     Route: 048
     Dates: start: 201405
  19. RANEXA [Concomitant]
     Active Substance: RANOLAZINE
     Indication: PRODUCT USED FOR UNKNOWN INDICATION
     Dosage: UNK
     Route: 048
     Dates: start: 2011
  20. IMDUR [Suspect]
     Active Substance: ISOSORBIDE MONONITRATE
     Dosage: 60 MG, QD
     Route: 048
     Dates: start: 20160422
  21. LASIX [Suspect]
     Active Substance: FUROSEMIDE
     Dosage: 20 MG, QD
     Route: 048
     Dates: start: 20151124
  22. NITROSTAT [Suspect]
     Active Substance: NITROGLYCERIN
     Indication: MYOCARDIAL INFARCTION
     Dosage: 1 UNK, UNK
     Route: 050
     Dates: start: 20160422, end: 20160422
  23. ASPIRIN                            /00002701/ [Concomitant]
     Active Substance: ASPIRIN
     Indication: PRODUCT USED FOR UNKNOWN INDICATION
     Dosage: UNK
     Route: 048
     Dates: start: 2008

REACTIONS (4)
  - Angina unstable [Recovered/Resolved]
  - Myocardial infarction [Recovered/Resolved]
  - Cerebrovascular accident [Recovered/Resolved]
  - Syncope [Recovered/Resolved]

NARRATIVE: CASE EVENT DATE: 20151121
